FAERS Safety Report 22109663 (Version 1)
Quarter: 2023Q1

REPORT INFORMATION
  Report Type: Spontaneous
  Country: US (occurrence: None)
  Receive Date: 20230316
  Receipt Date: 20230316
  Transmission Date: 20230418
  Serious: No
  Sender: FDA-Public Use
  Company Number: None

PATIENT
  Age: 86 Year
  Sex: Female

DRUGS (1)
  1. PROLIA [Suspect]
     Active Substance: DENOSUMAB
     Dosage: OTHER FREQUENCY : EVERY 6 MONTH;?
     Route: 058
     Dates: start: 202209

REACTIONS (2)
  - Fall [None]
  - Tibia fracture [None]

NARRATIVE: CASE EVENT DATE: 20230220
